FAERS Safety Report 23740245 (Version 2)
Quarter: 2024Q2

REPORT INFORMATION
  Report Type: Report from Study
  Country: ES (occurrence: ES)
  Receive Date: 20240414
  Receipt Date: 20240417
  Transmission Date: 20240716
  Serious: Yes (Hospitalization)
  Sender: FDA-Public Use
  Company Number: ES-ABBVIE-5566222

PATIENT
  Age: 81 Year
  Sex: Female

DRUGS (3)
  1. CARBIDOPA\LEVODOPA [Suspect]
     Active Substance: CARBIDOPA\LEVODOPA
     Indication: Parkinson^s disease
     Route: 050
     Dates: start: 20190717, end: 20240110
  2. CARBIDOPA\LEVODOPA [Suspect]
     Active Substance: CARBIDOPA\LEVODOPA
     Dosage: INCREASE THE CONTINUOUS DOSE TO 2.8 ML AND EXTRA DOSE TO 3ML.
     Route: 050
     Dates: start: 20240110, end: 20240123
  3. CARBIDOPA\LEVODOPA [Suspect]
     Active Substance: CARBIDOPA\LEVODOPA
     Dosage: INCREASE THE CONTINUOUS DOSE TO 2.8 ML AND EXTRA DOSE TO 3ML.
     Route: 050
     Dates: start: 20240123

REACTIONS (16)
  - Transient ischaemic attack [Recovered/Resolved]
  - Candida test positive [Recovering/Resolving]
  - Scar [Recovered/Resolved]
  - Psychomotor hyperactivity [Not Recovered/Not Resolved]
  - Pain [Recovered/Resolved]
  - Device dislocation [Unknown]
  - Feeling abnormal [Unknown]
  - Stoma site erythema [Recovered/Resolved]
  - Dyskinesia [Not Recovered/Not Resolved]
  - Cognitive disorder [Unknown]
  - Device issue [Unknown]
  - Abdominal pain [Recovered/Resolved]
  - Unevaluable event [Unknown]
  - Stoma site hypergranulation [Recovered/Resolved]
  - Freezing phenomenon [Recovering/Resolving]
  - Mental impairment [Not Recovered/Not Resolved]

NARRATIVE: CASE EVENT DATE: 20231201
